FAERS Safety Report 6267476-9 (Version None)
Quarter: 2009Q3

REPORT INFORMATION
  Report Type: 
  Country: None (occurrence: None)
  Receive Date: 20090714
  Receipt Date: 20090706
  Transmission Date: 20100115
  Serious: Yes (Other)
  Sender: FDA-Public Use
  Company Number: AU-AVENTIS-200916769GDDC

PATIENT
  Age: 70 Year
  Sex: Male

DRUGS (4)
  1. LANTUS [Suspect]
     Dates: start: 20040101
  2. AUTOPEN INSULIN INJECTION PEN [Suspect]
  3. ASPIRIN [Concomitant]
  4. LIPITOR [Concomitant]

REACTIONS (1)
  - GASTROINTESTINAL CARCINOMA [None]
